FAERS Safety Report 20501563 (Version 1)
Quarter: 2022Q1

REPORT INFORMATION
  Report Type: Spontaneous
  Country: US (occurrence: US)
  Receive Date: 20220222
  Receipt Date: 20220222
  Transmission Date: 20220424
  Serious: No
  Sender: FDA-Public Use
  Company Number: US-PFIZER INC-202200257783

PATIENT

DRUGS (2)
  1. NORVASC [Suspect]
     Active Substance: AMLODIPINE BESYLATE
     Dosage: 5 MG IN THE MORNING
     Dates: start: 20220211
  2. TRAMADOL [Suspect]
     Active Substance: TRAMADOL
     Dosage: 50 MG IN THE MORNING
     Dates: start: 20220212

REACTIONS (2)
  - Hypoacusis [Unknown]
  - Wrong product administered [Unknown]

NARRATIVE: CASE EVENT DATE: 20220212
